FAERS Safety Report 8037831-5 (Version None)
Quarter: 2012Q1

REPORT INFORMATION
  Report Type: 
  Country: None (occurrence: None)
  Receive Date: 20120111
  Receipt Date: 20120105
  Transmission Date: 20120608
  Serious: Yes (Hospitalization, Other)
  Sender: FDA-Public Use
  Company Number: PHHY2011US19731

PATIENT
  Sex: Male
  Weight: 149 kg

DRUGS (11)
  1. MEGACE [Concomitant]
  2. ALDACTONE [Concomitant]
  3. OMEPRAZOLE [Concomitant]
  4. GLEEVEC [Suspect]
     Indication: NEOPLASM MALIGNANT
     Dosage: 400 MG,DAILY
     Route: 048
     Dates: start: 20100916
  5. LACTULOSE [Concomitant]
  6. LIPITOR [Concomitant]
  7. COMPAZINE [Concomitant]
  8. MAG-OX [Concomitant]
  9. LASIX [Concomitant]
  10. FERATAB [Concomitant]
  11. ZOLOFT [Concomitant]

REACTIONS (12)
  - SKIN HYPERPIGMENTATION [None]
  - VOMITING [None]
  - WEIGHT DECREASED [None]
  - RENAL FAILURE CHRONIC [None]
  - BREATH ODOUR [None]
  - IRON DEFICIENCY [None]
  - ANAEMIA [None]
  - CONSTIPATION [None]
  - DENTAL CARIES [None]
  - DEPRESSION [None]
  - IMPAIRED GASTRIC EMPTYING [None]
  - DEHYDRATION [None]
